FAERS Safety Report 5450198-1 (Version None)
Quarter: 2007Q3

REPORT INFORMATION
  Report Type: 
  Country: None (occurrence: None)
  Receive Date: 20070912
  Receipt Date: 20070830
  Transmission Date: 20080115
  Serious: Yes (Hospitalization)
  Sender: FDA-Public Use
  Company Number: BR-ROCHE-513273

PATIENT
  Age: 20 Year
  Sex: Female
  Weight: 60 kg

DRUGS (1)
  1. ISOTRETINOIN [Suspect]
     Indication: ACNE
     Dosage: STRENGTH REPORTED AS 10 MG AND 20 MG CAPS.
     Route: 048
     Dates: start: 20070601, end: 20070807

REACTIONS (1)
  - SUICIDE ATTEMPT [None]
